FAERS Safety Report 19661972 (Version 1)
Quarter: 2021Q3

REPORT INFORMATION
  Report Type: Spontaneous
  Country: CO (occurrence: CO)
  Receive Date: 20210805
  Receipt Date: 20210805
  Transmission Date: 20211014
  Serious: Yes (Hospitalization)
  Sender: FDA-Public Use
  Company Number: CO-ASTRAZENECA-2021A652963

PATIENT
  Sex: Female
  Weight: 60 kg

DRUGS (1)
  1. FASENRA [Suspect]
     Active Substance: BENRALIZUMAB
     Indication: ASTHMA
     Route: 058
     Dates: start: 20210602

REACTIONS (2)
  - Product dose omission issue [Unknown]
  - Asthma [Unknown]

NARRATIVE: CASE EVENT DATE: 20210709
